FAERS Safety Report 9224762 (Version 1)
Quarter: 2013Q2

REPORT INFORMATION
  Report Type: Spontaneous
  Country: PR (occurrence: None)
  Receive Date: 20130409
  Receipt Date: 20130409
  Transmission Date: 20140414
  Serious: Yes (Disabling, Other)
  Sender: FDA-Public Use
  Company Number: HA13-097-AE

PATIENT
  Age: 47 Year
  Sex: Male

DRUGS (1)
  1. GABAPENTIN [Suspect]
     Indication: DRUG THERAPY
     Route: 048
     Dates: start: 20120224

REACTIONS (8)
  - Amnesia [None]
  - Memory impairment [None]
  - Somnambulism [None]
  - Convulsion [None]
  - Depression [None]
  - Abnormal behaviour [None]
  - Disorientation [None]
  - Cognitive disorder [None]
